FAERS Safety Report 7125547-9 (Version None)
Quarter: 2010Q4

REPORT INFORMATION
  Report Type: 
  Country: None (occurrence: None)
  Receive Date: 20101112
  Receipt Date: 20101028
  Transmission Date: 20110411
  Serious: Yes (Other)
  Sender: FDA-Public Use
  Company Number: AUR-APL-2010-02765

PATIENT
  Age: 68 Year
  Sex: Male
  Weight: 113.38 kg

DRUGS (12)
  1. LISINOPRIL [Suspect]
     Indication: PRODUCT USED FOR UNKNOWN INDICATION
     Dosage: 2 TABS AM, 1 TAB PM,
  2. VIAGRA [Suspect]
     Indication: ERECTILE DYSFUNCTION
     Dosage: 50-100MG-AS NEEDED, ORAL
     Route: 048
     Dates: start: 20080101
  3. LEXAPRO [Concomitant]
  4. SIMVASTATIN [Concomitant]
  5. PLAVIX [Concomitant]
  6. LORAZEPAM [Concomitant]
  7. RANIBIZUMAB INJECTION [Concomitant]
  8. ASCORBIC ACID [Concomitant]
  9. VITAMIN D [Concomitant]
  10. SELENIUM [Concomitant]
  11. MULTI-VITAMINS [Concomitant]
  12. MAGNESIUM [Concomitant]

REACTIONS (3)
  - DRUG INTERACTION [None]
  - FALL [None]
  - HYPOTENSION [None]
